FAERS Safety Report 22291761 (Version 1)
Quarter: 2023Q2

REPORT INFORMATION
  Report Type: Spontaneous
  Country: US (occurrence: None)
  Receive Date: 20230505
  Receipt Date: 20230505
  Transmission Date: 20230722
  Serious: No
  Sender: FDA-Public Use
  Company Number: None

PATIENT
  Age: 74 Year
  Sex: Male
  Weight: 89.55 kg

DRUGS (12)
  1. CREST PREMIUM PLUS ANTI-BACTERIAL [Suspect]
     Active Substance: STANNOUS FLUORIDE
     Indication: Dental disorder prophylaxis
     Dosage: OTHER QUANTITY : 7 OUNCE(S);?
     Route: 061
     Dates: start: 20230404
  2. LOSARTAN [Concomitant]
     Active Substance: LOSARTAN
  3. ALLOPURINOL [Concomitant]
     Active Substance: ALLOPURINOL
  4. AMLODIPINE [Concomitant]
     Active Substance: AMLODIPINE BESYLATE
  5. ATORVASTATIN [Concomitant]
     Active Substance: ATORVASTATIN
  6. SINGULAIR [Concomitant]
     Active Substance: MONTELUKAST SODIUM
  7. MESALAMINE [Concomitant]
     Active Substance: MESALAMINE
  8. PANTOPRAZOLE [Concomitant]
     Active Substance: PANTOPRAZOLE
  9. B-12 shot [Concomitant]
  10. ASPIRIN [Concomitant]
     Active Substance: ASPIRIN
  11. vitamins D [Concomitant]
  12. VITAMIN C [Concomitant]
     Active Substance: ASCORBIC ACID

REACTIONS (3)
  - Mouth ulceration [None]
  - Tongue erythema [None]
  - Tongue discolouration [None]

NARRATIVE: CASE EVENT DATE: 20230426
